FAERS Safety Report 7791686-2 (Version None)
Quarter: 2011Q4

REPORT INFORMATION
  Report Type: 
  Country: None (occurrence: None)
  Receive Date: 20111003
  Receipt Date: 20110923
  Transmission Date: 20120403
  Serious: Yes (Other)
  Sender: FDA-Public Use
  Company Number: US-JNJFOC-20110910770

PATIENT
  Sex: Female

DRUGS (1)
  1. DOXORUBICIN HCL [Suspect]
     Indication: NEOPLASM
     Route: 042

REACTIONS (3)
  - ADVERSE EVENT [None]
  - INCOHERENT [None]
  - DRUG DOSE OMISSION [None]
